FAERS Safety Report 8153185 (Version 2)
Quarter: 2020Q3

REPORT INFORMATION
  Report Type: Report from Study
  Country: BE (occurrence: BE)
  Receive Date: 20110923
  Receipt Date: 20111019
  Transmission Date: 20201104
  Serious: Yes (Hospitalization, Other)
  Sender: FDA-Public Use
  Company Number: BE-JNJFOC-20110908478

PATIENT
  Age: 69 Year
  Sex: Female
  Weight: 95 kg

DRUGS (16)
  1. SELOZOK [Concomitant]
     Active Substance: METOPROLOL SUCCINATE
     Dates: start: 1991
  2. PERFUSALGAM [Concomitant]
     Dates: start: 20110123, end: 20110123
  3. RIVAROXABAN [Suspect]
     Active Substance: RIVAROXABAN
     Route: 048
     Dates: start: 20110124, end: 20110208
  4. IBEXONE [Concomitant]
     Dates: start: 2003
  5. TEVETEN [Concomitant]
     Active Substance: EPROSARTAN MESYLATE
     Dates: start: 2003
  6. CLEXANE [Concomitant]
     Active Substance: ENOXAPARIN SODIUM
     Dates: start: 20110601, end: 20110606
  7. ENOXAPARIN [Concomitant]
     Active Substance: ENOXAPARIN
     Indication: PULMONARY EMBOLISM
     Route: 058
     Dates: start: 20110123, end: 20110124
  8. CLEXANE [Concomitant]
     Active Substance: ENOXAPARIN SODIUM
     Dates: start: 20110607, end: 20110607
  9. INNOHEP [Concomitant]
     Active Substance: TINZAPARIN SODIUM
     Dates: start: 20110628
  10. RIVAROXABAN [Suspect]
     Active Substance: RIVAROXABAN
     Indication: PULMONARY EMBOLISM
     Route: 048
     Dates: start: 20110215, end: 20110530
  11. ASAFLOW [Concomitant]
  12. ALLOPURINOL. [Concomitant]
     Active Substance: ALLOPURINOL
     Dates: start: 2010
  13. DAFALGAN [Concomitant]
     Active Substance: ACETAMINOPHEN
     Dates: start: 20110126
  14. RIVAROXABAN [Suspect]
     Active Substance: RIVAROXABAN
     Route: 048
     Dates: start: 20110211, end: 20110214
  15. LIPITOR [Concomitant]
     Active Substance: ATORVASTATIN CALCIUM
     Dates: start: 20081117
  16. CLEXANE [Concomitant]
     Active Substance: ENOXAPARIN SODIUM
     Dates: start: 20110607, end: 20110627

REACTIONS (2)
  - Anaemia [Recovering/Resolving]
  - Colon neoplasm [Not Recovered/Not Resolved]

NARRATIVE: CASE EVENT DATE: 20110531
